FAERS Safety Report 8309915-5 (Version None)
Quarter: 2012Q2

REPORT INFORMATION
  Report Type: 
  Country: None (occurrence: None)
  Receive Date: 20120425
  Receipt Date: 20120420
  Transmission Date: 20120825
  Serious: Yes (Death)
  Sender: FDA-Public Use
  Company Number: VE-PFIZER INC-2012091383

PATIENT
  Age: 74 Year
  Sex: Male

DRUGS (1)
  1. CADUET [Suspect]
     Indication: HYPERTENSION
     Dosage: AMLODIPINE BESILATE 5 MG/ATORVASTATIN CALCIUM 40 MG, 1X/DAY
     Route: 048
     Dates: start: 20070101

REACTIONS (1)
  - RESPIRATORY ARREST [None]
